FAERS Safety Report 25136632 (Version 3)
Quarter: 2025Q2

REPORT INFORMATION
  Report Type: Spontaneous
  Country: US (occurrence: US)
  Receive Date: 20250328
  Receipt Date: 20250602
  Transmission Date: 20250716
  Serious: No
  Sender: Kenvue
  Company Number: US-KENVUE-20250307894

PATIENT
  Sex: Female

DRUGS (3)
  1. ZYRTEC [Suspect]
     Active Substance: CETIRIZINE HYDROCHLORIDE
     Indication: Multiple allergies
     Dosage: 1 DOSAGE FORM, ONCE A DAY, APPROX. 20 YEARS AGO
     Route: 048
     Dates: start: 2000, end: 20250203
  2. VITAMINS [Concomitant]
     Active Substance: VITAMINS
     Indication: Product used for unknown indication
     Route: 065
     Dates: start: 2010
  3. Allergia [Concomitant]
     Indication: Hypersensitivity
     Route: 065
     Dates: start: 20250207

REACTIONS (3)
  - Drug ineffective [Unknown]
  - Urticaria [Unknown]
  - Pruritus [Not Recovered/Not Resolved]
